FAERS Safety Report 25253640 (Version 2)
Quarter: 2025Q2

REPORT INFORMATION
  Report Type: Spontaneous
  Country: FR (occurrence: FR)
  Receive Date: 20250430
  Receipt Date: 20250528
  Transmission Date: 20250717
  Serious: Yes (Other)
  Sender: TEVA
  Company Number: None

PATIENT
  Age: 65 Year
  Sex: Male
  Weight: 90 kg

DRUGS (10)
  1. PACLITAXEL [Suspect]
     Active Substance: PACLITAXEL
     Indication: Small cell lung cancer
     Route: 042
     Dates: start: 20250305, end: 20250305
  2. PACLITAXEL [Suspect]
     Active Substance: PACLITAXEL
     Indication: Small cell lung cancer
     Route: 042
     Dates: start: 20250326, end: 20250326
  3. CARBOPLATIN [Suspect]
     Active Substance: CARBOPLATIN
     Indication: Small cell lung cancer
     Route: 042
     Dates: start: 20250305, end: 20250305
  4. CARBOPLATIN [Suspect]
     Active Substance: CARBOPLATIN
     Indication: Small cell lung cancer
     Route: 042
     Dates: start: 20250326, end: 20250326
  5. SOLU-MEDROL [Suspect]
     Active Substance: METHYLPREDNISOLONE SODIUM SUCCINATE
     Indication: Prophylaxis
     Route: 042
     Dates: start: 20250326, end: 20250326
  6. SOLU-MEDROL [Suspect]
     Active Substance: METHYLPREDNISOLONE SODIUM SUCCINATE
     Indication: Prophylaxis
     Route: 042
     Dates: start: 20250305, end: 20250305
  7. CIMETIDINE [Suspect]
     Active Substance: CIMETIDINE
     Indication: Prophylaxis
     Route: 048
     Dates: start: 20250326, end: 20250326
  8. CIMETIDINE [Suspect]
     Active Substance: CIMETIDINE
     Indication: Prophylaxis
     Route: 048
     Dates: start: 20250305, end: 20250305
  9. EMEND [Suspect]
     Active Substance: APREPITANT
     Indication: Prophylaxis
     Route: 048
     Dates: start: 20250326, end: 20250326
  10. EMEND [Suspect]
     Active Substance: APREPITANT
     Indication: Prophylaxis
     Route: 048
     Dates: start: 20250305, end: 20250305

REACTIONS (2)
  - Rash maculo-papular [Recovered/Resolved]
  - Erythema [Recovered/Resolved]

NARRATIVE: CASE EVENT DATE: 20250306
